FAERS Safety Report 22649210 (Version 1)
Quarter: 2023Q2

REPORT INFORMATION
  Report Type: Report from Study
  Country: JP (occurrence: JP)
  Receive Date: 20230628
  Receipt Date: 20230628
  Transmission Date: 20230721
  Serious: Yes (Other)
  Sender: FDA-Public Use
  Company Number: JP-JNJFOC-20230647293

PATIENT
  Age: 83 Year
  Sex: Male
  Weight: 51 kg

DRUGS (7)
  1. ERLEADA [Suspect]
     Active Substance: APALUTAMIDE
     Indication: Prostate cancer
     Route: 048
     Dates: start: 20230609, end: 20230622
  2. ZYTIGA [Suspect]
     Active Substance: ABIRATERONE ACETATE
     Indication: Prostate cancer
     Dosage: DOSE UNKNOWN
     Route: 048
     Dates: start: 202206
  3. AMLODIPINE BESYLATE [Concomitant]
     Active Substance: AMLODIPINE BESYLATE
     Indication: Hypertension
     Dosage: DOSE UNKNOWN
     Route: 048
     Dates: start: 202302
  4. OLMESARTAN MEDOXOMIL [Concomitant]
     Active Substance: OLMESARTAN MEDOXOMIL
     Indication: Hypertension
     Dosage: DOSE UNKNOWN
     Route: 048
     Dates: start: 202302
  5. SILODOSIN [Concomitant]
     Active Substance: SILODOSIN
     Indication: Benign prostatic hyperplasia
     Dosage: DOSE UNKNOWN
     Route: 048
     Dates: end: 20230608
  6. BISOPROLOL FUMARATE [Concomitant]
     Active Substance: BISOPROLOL FUMARATE
     Indication: Arrhythmia
     Route: 048
  7. ETHINYL ESTRADIOL [Concomitant]
     Active Substance: ETHINYL ESTRADIOL
     Indication: Prostate cancer
     Dosage: DOSE UNKNOWN
     Route: 048
     Dates: start: 20230622

REACTIONS (9)
  - Arrhythmia [Not Recovered/Not Resolved]
  - Taste disorder [Recovering/Resolving]
  - Malaise [Recovering/Resolving]
  - Prostatic specific antigen increased [Not Recovered/Not Resolved]
  - Osteoarthritis [Not Recovered/Not Resolved]
  - Hypertension [Recovering/Resolving]
  - Dysuria [Not Recovered/Not Resolved]
  - Body height decreased [Not Recovered/Not Resolved]
  - Weight decreased [Not Recovered/Not Resolved]

NARRATIVE: CASE EVENT DATE: 20220601
